FAERS Safety Report 25474032 (Version 2)
Quarter: 2025Q3

REPORT INFORMATION
  Report Type: Spontaneous
  Country: US (occurrence: US)
  Receive Date: 20250624
  Receipt Date: 20250707
  Transmission Date: 20251021
  Serious: No
  Sender: BAYER HEALTHCARE PHARMACEUTICALS INC.
  Company Number: US-BAYER-2025A083021

PATIENT
  Sex: Female

DRUGS (1)
  1. MIRENA [Suspect]
     Active Substance: LEVONORGESTREL
     Indication: Heavy menstrual bleeding
     Dosage: 20?G/DAY
     Route: 015
     Dates: start: 20250203

REACTIONS (8)
  - Headache [None]
  - Tissue injury [None]
  - Cyst [None]
  - Polymers allergy [None]
  - Contraindicated device used [None]
  - Medical device monitoring error [None]
  - Vaginal infection [None]
  - Vulvovaginal inflammation [None]
